FAERS Safety Report 8113802-5 (Version None)
Quarter: 2012Q1

REPORT INFORMATION
  Report Type: 
  Country: None (occurrence: None)
  Receive Date: 20120203
  Receipt Date: 20120120
  Transmission Date: 20120608
  Serious: Yes (Other)
  Sender: FDA-Public Use
  Company Number: CHPA2012US002411

PATIENT
  Age: 68 Year
  Sex: Female

DRUGS (1)
  1. EXCEDRIN MIGRAINE CAPLETS [Suspect]
     Dosage: UNK, UNK
     Route: 048
     Dates: start: 20100101, end: 20100101

REACTIONS (2)
  - HEADACHE [None]
  - LIVER DISORDER [None]
